FAERS Safety Report 5701033-5 (Version None)
Quarter: 2008Q2

REPORT INFORMATION
  Report Type: 
  Country: None (occurrence: None)
  Receive Date: 20080410
  Receipt Date: 20080407
  Transmission Date: 20081010
  Serious: Yes (Other)
  Sender: FDA-Public Use
  Company Number: ES-WYE-G01358908

PATIENT
  Age: 63 Year
  Sex: Male

DRUGS (1)
  1. TEMSIROLIMUS [Suspect]
     Dosage: UNKNOWN

REACTIONS (2)
  - ANGINA PECTORIS [None]
  - CARDIAC ENZYMES INCREASED [None]
